FAERS Safety Report 8559175-5 (Version None)
Quarter: 2012Q3

REPORT INFORMATION
  Report Type: 
  Country: None (occurrence: None)
  Receive Date: 20120720
  Receipt Date: 20120709
  Transmission Date: 20120928
  Serious: Yes (Hospitalization)
  Sender: FDA-Public Use
  Company Number: NGX_01089_2012

PATIENT
  Sex: Male
  Weight: 73 kg

DRUGS (4)
  1. TARGIN [Concomitant]
  2. LYRICA [Concomitant]
  3. AMITRIPTYLINE HCL [Concomitant]
  4. QUTENZA [Suspect]
     Indication: PHANTOM PAIN
     Dosage: 1 DF, [PATCH, APPLIED TO STUMP] TOPICAL
     Route: 061
     Dates: start: 20120426, end: 20120426

REACTIONS (1)
  - APPLICATION SITE SWELLING [None]
